FAERS Safety Report 5675529-9 (Version None)
Quarter: 2008Q2

REPORT INFORMATION
  Report Type: 
  Country: None (occurrence: None)
  Receive Date: 20080312
  Receipt Date: 20071128
  Transmission Date: 20081010
  Serious: Yes (Other)
  Sender: FDA-Public Use
  Company Number: 2007-0014483

PATIENT
  Sex: Female

DRUGS (1)
  1. ATRIPLA [Suspect]
     Dates: start: 20061201, end: 20070501

REACTIONS (1)
  - TREATMENT FAILURE [None]
